FAERS Safety Report 8534732-0 (Version None)
Quarter: 2012Q3

REPORT INFORMATION
  Report Type: 
  Country: None (occurrence: None)
  Receive Date: 20120724
  Receipt Date: 20120720
  Transmission Date: 20120928
  Serious: Yes (Death)
  Sender: FDA-Public Use
  Company Number: JP-VIIV HEALTHCARE LIMITED-B0811249A

PATIENT
  Sex: Male

DRUGS (10)
  1. MARAVIROC [Suspect]
     Indication: HIV INFECTION
     Dosage: 300MG PER DAY
     Route: 048
     Dates: start: 20120510
  2. ISENTRESS [Suspect]
     Indication: HIV INFECTION
     Dosage: 800MG PER DAY
     Route: 048
     Dates: start: 20120510
  3. NORVIR [Suspect]
     Indication: HIV INFECTION
     Dosage: 200MG PER DAY
     Route: 048
     Dates: start: 20120510
  4. REYATAZ [Concomitant]
     Indication: HIV INFECTION
     Dosage: 400MG PER DAY
     Route: 048
     Dates: end: 20120510
  5. CONIEL [Concomitant]
     Indication: HYPERTENSION
     Dosage: 8MG PER DAY
     Route: 048
     Dates: start: 20061220
  6. INTELENCE [Concomitant]
     Indication: HIV INFECTION
     Dosage: 400MG PER DAY
     Route: 048
     Dates: end: 20120510
  7. MEXITIL [Concomitant]
     Indication: ARRHYTHMIA
     Dosage: 300MG PER DAY
     Route: 048
     Dates: start: 20090520
  8. CLONAZEPAM [Concomitant]
     Indication: ESSENTIAL TREMOR
     Route: 048
     Dates: start: 20100707
  9. PREZISTA [Suspect]
     Indication: HIV INFECTION
     Dosage: 1200MG PER DAY
     Route: 048
     Dates: start: 20120510
  10. OLMESARTAN MEDOXOMIL [Concomitant]
     Indication: HYPERTENSION
     Dosage: 20MG PER DAY
     Route: 048
     Dates: start: 20090415

REACTIONS (4)
  - OEDEMA [None]
  - RENAL IMPAIRMENT [None]
  - CEREBRAL HAEMORRHAGE [None]
  - ANAEMIA [None]
